FAERS Safety Report 10074139 (Version 2)
Quarter: 2014Q2

REPORT INFORMATION
  Report Type: Spontaneous
  Country: US (occurrence: US)
  Receive Date: 20140411
  Receipt Date: 20140421
  Transmission Date: 20141212
  Serious: Yes (Other)
  Sender: FDA-Public Use
  Company Number: US-SA-2014SA021527

PATIENT
  Age: 37 Year
  Sex: Female
  Weight: 59 kg

DRUGS (2)
  1. ALLEGRA D [Suspect]
     Indication: PARANASAL SINUS DISCOMFORT
     Dosage: DOSE: 1 TALET
     Route: 048
     Dates: start: 20140218, end: 20140218
  2. ALLEGRA D [Suspect]
     Indication: SINUS HEADACHE
     Dosage: DOSE: 1 TALET
     Route: 048
     Dates: start: 20140218, end: 20140218

REACTIONS (2)
  - Choking [Recovered/Resolved]
  - Foreign body [Recovered/Resolved]
